FAERS Safety Report 16639998 (Version 3)
Quarter: 2019Q4

REPORT INFORMATION
  Report Type: Spontaneous
  Country: US (occurrence: US)
  Receive Date: 20190727
  Receipt Date: 20191016
  Transmission Date: 20200122
  Serious: No
  Sender: FDA-Public Use
  Company Number: US-CELGENEUS-USA-20190708125

PATIENT
  Age: 75 Year
  Sex: Female
  Weight: 72.12 kg

DRUGS (3)
  1. REVLIMID [Suspect]
     Active Substance: LENALIDOMIDE
     Indication: MYELODYSPLASTIC SYNDROME
     Dosage: 2.5 MILLIGRAM
     Route: 048
     Dates: start: 20190415
  2. REVLIMID [Suspect]
     Active Substance: LENALIDOMIDE
     Indication: PANCYTOPENIA
     Dosage: 2.5 MILLIGRAM
     Route: 048
     Dates: start: 20190905
  3. REVLIMID [Suspect]
     Active Substance: LENALIDOMIDE
     Indication: PLASMA CELL MYELOMA
     Route: 048
     Dates: start: 20190228

REACTIONS (8)
  - Muscle spasms [Unknown]
  - Petechiae [Unknown]
  - Inflammation [Unknown]
  - Peripheral swelling [Unknown]
  - Gait disturbance [Unknown]
  - Pruritus [Unknown]
  - Dizziness [Unknown]
  - Oedema peripheral [Unknown]

NARRATIVE: CASE EVENT DATE: 20190710
